FAERS Safety Report 9391380 (Version 1)
Quarter: 2013Q3

REPORT INFORMATION
  Report Type: Spontaneous
  Country: CN (occurrence: CN)
  Receive Date: 20130709
  Receipt Date: 20130709
  Transmission Date: 20140515
  Serious: Yes (Other)
  Sender: FDA-Public Use
  Company Number: CN-ASTELLAS-2013JP007352

PATIENT
  Age: 60 Year
  Sex: Male

DRUGS (3)
  1. PROGRAF [Suspect]
     Indication: RENAL TRANSPLANT
     Route: 065
  2. CELLCEPT                           /01275102/ [Concomitant]
     Indication: RENAL TRANSPLANT
     Route: 065
  3. HORMONES [Concomitant]
     Indication: RENAL TRANSPLANT
     Route: 065

REACTIONS (5)
  - Lung infection [Recovered/Resolved]
  - Local swelling [Recovered/Resolved]
  - Pyrexia [Recovered/Resolved]
  - Nerve injury [Recovered/Resolved]
  - Blood creatinine increased [Not Recovered/Not Resolved]
